FAERS Safety Report 6782491-4 (Version None)
Quarter: 2010Q2

REPORT INFORMATION
  Report Type: 
  Country: None (occurrence: None)
  Receive Date: 20100616
  Receipt Date: 20100601
  Transmission Date: 20101027
  Serious: Yes (Other)
  Sender: FDA-Public Use
  Company Number: AUR-APL-2010-01443

PATIENT
  Age: 34 Year
  Sex: Male

DRUGS (3)
  1. CLINDAMYCIN [Suspect]
     Indication: PAIN
     Dosage: 300 MG, QID
  2. CLINDAMYCIN [Suspect]
     Indication: SWELLING
     Dosage: 300 MG, QID
  3. TRIMETHOPRIM + SULFAMETHOXAZOLE [Concomitant]

REACTIONS (1)
  - ACUTE FEBRILE NEUTROPHILIC DERMATOSIS [None]
